FAERS Safety Report 8525233-4 (Version None)
Quarter: 2012Q3

REPORT INFORMATION
  Report Type: 
  Country: None (occurrence: None)
  Receive Date: 20120720
  Receipt Date: 20120716
  Transmission Date: 20120928
  Serious: Yes (Other)
  Sender: FDA-Public Use
  Company Number: PHHY2012FR061836

PATIENT
  Age: 78 Year
  Sex: Female

DRUGS (2)
  1. ZOLEDRONOC ACID [Suspect]
     Dosage: UNK UKN, UNK
     Route: 042
  2. ACETAMINOPHEN [Concomitant]
     Indication: PROPHYLAXIS
     Dosage: UNK UKN, UNK

REACTIONS (7)
  - DIARRHOEA [None]
  - INFLUENZA [None]
  - BODY TEMPERATURE INCREASED [None]
  - STREPTOCOCCAL INFECTION [None]
  - MYALGIA [None]
  - ATROPHIC GLOSSITIS [None]
  - APHTHOUS STOMATITIS [None]
